FAERS Safety Report 7230410-9 (Version None)
Quarter: 2011Q1

REPORT INFORMATION
  Report Type: 
  Country: None (occurrence: None)
  Receive Date: 20110118
  Receipt Date: 20110107
  Transmission Date: 20110831
  Serious: Yes (Other)
  Sender: FDA-Public Use
  Company Number: US-JNJFOC-20110103181

PATIENT

DRUGS (2)
  1. ULTRAM ER [Suspect]
     Indication: PAIN
  2. TRAMADOL HCL [Suspect]
     Indication: PAIN

REACTIONS (11)
  - HALLUCINATION, VISUAL [None]
  - HYPERHIDROSIS [None]
  - INSOMNIA [None]
  - FATIGUE [None]
  - VOMITING [None]
  - HEADACHE [None]
  - PHARYNGEAL OEDEMA [None]
  - RASH [None]
  - DRUG INEFFECTIVE [None]
  - DIZZINESS [None]
  - ASTHENIA [None]
